FAERS Safety Report 8313687-8 (Version None)
Quarter: 2012Q2

REPORT INFORMATION
  Report Type: 
  Country: None (occurrence: None)
  Receive Date: 20120426
  Receipt Date: 20120418
  Transmission Date: 20120825
  Serious: Yes (Hospitalization, Other)
  Sender: FDA-Public Use
  Company Number: DE-ELI_LILLY_AND_COMPANY-DE201202008248

PATIENT
  Age: 57 Year
  Sex: Male

DRUGS (6)
  1. METOPROLOL SUCCINATE [Concomitant]
     Dosage: 47.5 UNK, UNKNOWN
  2. EZETIMIBE [Concomitant]
  3. HUMALOG [Concomitant]
  4. ASPIRIN [Concomitant]
     Dosage: 100 UNK, UNKNOWN
  5. RAMIPRIL [Concomitant]
     Dosage: 5 UNK, UNKNOWN
  6. EFFIENT [Suspect]
     Indication: STENT PLACEMENT
     Dosage: 10 MG, UNKNOWN
     Dates: start: 20110715

REACTIONS (1)
  - THROMBOSIS IN DEVICE [None]
